FAERS Safety Report 14326949 (Version 1)
Quarter: 2017Q4

REPORT INFORMATION
  Report Type: Spontaneous
  Country: AU (occurrence: AU)
  Receive Date: 20171227
  Receipt Date: 20171227
  Transmission Date: 20180321
  Serious: No
  Sender: FDA-Public Use
  Company Number: AU-LUPIN PHARMACEUTICALS INC.-2017-05647

PATIENT
  Age: 54 Year
  Sex: Female

DRUGS (3)
  1. ZOLPIBELL 10 MG TABLET [Suspect]
     Active Substance: ZOLPIDEM TARTRATE
     Dosage: UNK, QD (REMAINDER OF THE ZOLPIBELL TABLETS FROM 14 TABLETS PACK DURING THE DAY)
     Route: 065
     Dates: start: 20170919
  2. EFFEXOR [Concomitant]
     Active Substance: VENLAFAXINE HYDROCHLORIDE
     Indication: PRODUCT USED FOR UNKNOWN INDICATION
     Dosage: UNK
     Route: 065
  3. ZOLPIBELL 10 MG TABLET [Suspect]
     Active Substance: ZOLPIDEM TARTRATE
     Indication: INSOMNIA
     Dosage: UNK, QD (BETWEEN 1 AND 2 TABLETS EACH NIGHT)
     Route: 065
     Dates: start: 20170918

REACTIONS (3)
  - Insomnia [Not Recovered/Not Resolved]
  - Drug ineffective [Unknown]
  - Intentional overdose [Unknown]

NARRATIVE: CASE EVENT DATE: 20170918
